FAERS Safety Report 5623089-0 (Version None)
Quarter: 2008Q1

REPORT INFORMATION
  Report Type: 
  Country: None (occurrence: None)
  Receive Date: 20080212
  Receipt Date: 20080204
  Transmission Date: 20080703
  Serious: Yes (Hospitalization, Other)
  Sender: FDA-Public Use
  Company Number: DK-KINGPHARMUSA00001-K200800164

PATIENT

DRUGS (3)
  1. EPIPEN [Suspect]
     Indication: ANAPHYLAXIS PROPHYLAXIS
     Dosage: .3 MG, SINGLE
     Route: 030
  2. CORTICOSTEROIDS [Concomitant]
     Indication: HYPERSENSITIVITY
  3. ANTIHISTAMINES [Concomitant]
     Indication: HYPERSENSITIVITY

REACTIONS (2)
  - ALLERGY TO CHEMICALS [None]
  - APPLICATION SITE INFLAMMATION [None]
